FAERS Safety Report 4311378-1 (Version None)
Quarter: 2004Q1

REPORT INFORMATION
  Report Type: 
  Country: None (occurrence: None)
  Receive Date: 20040302
  Receipt Date: 20030328
  Transmission Date: 20041129
  Serious: Yes (Hospitalization)
  Sender: FDA-Public Use
  Company Number: BDI-004997

PATIENT
  Age: 38 Year
  Sex: Male

DRUGS (2)
  1. ISOVUE-300 [Suspect]
     Indication: CATHETER PLACEMENT
     Dosage: 50 ML ONCE IV
     Dates: start: 20030213, end: 20030213
  2. ISOVUE-300 [Suspect]
     Indication: SINUSITIS
     Dosage: 50 ML ONCE IV
     Dates: start: 20030213, end: 20030213

REACTIONS (1)
  - ANAPHYLACTOID REACTION [None]
